FAERS Safety Report 9413630 (Version 2)
Quarter: 2013Q4

REPORT INFORMATION
  Report Type: Spontaneous
  Country: GB (occurrence: None)
  Receive Date: 20130507
  Receipt Date: 20131016
  Transmission Date: 20140711
  Serious: Yes (Other)
  Sender: FDA-Public Use
  Company Number: AUR-APL-2013-03506

PATIENT
  Age: 32 Year
  Sex: Male
  Weight: 96.3 kg

DRUGS (7)
  1. RIBAVIRIN [Suspect]
     Indication: HEPATITIS C
     Route: 048
     Dates: start: 20130121, end: 20130410
  2. FELODIPINE [Suspect]
     Indication: HEPATITIS C
     Route: 048
     Dates: start: 20130320, end: 20130410
  3. TELAPREVIR [Suspect]
     Indication: HEPATITIS C
     Dosage: (750 MG,3 IN 1 D)
     Route: 048
     Dates: start: 20130225, end: 20130410
  4. PEGYLATED INTERFERON NOS [Suspect]
     Indication: HEPATITIS C
     Route: 058
     Dates: start: 20130121, end: 20130410
  5. ALLOPURINOL(ALLOPURINOL) [Concomitant]
  6. ATENOLOL(ATENOLOL) [Concomitant]
  7. RAMIPRIL(RAMIPRIL) [Concomitant]

REACTIONS (3)
  - Hypertension [None]
  - Drug interaction [None]
  - Renal impairment [None]
